FAERS Safety Report 18982163 (Version 1)
Quarter: 2021Q1

REPORT INFORMATION
  Report Type: Spontaneous
  Country: US (occurrence: US)
  Receive Date: 20210308
  Receipt Date: 20210308
  Transmission Date: 20210420
  Serious: Yes (Other)
  Sender: FDA-Public Use
  Company Number: US-ELI_LILLY_AND_COMPANY-US202102013332

PATIENT
  Age: 31 Year
  Sex: Female

DRUGS (3)
  1. NOVOLOG [Suspect]
     Active Substance: INSULIN ASPART
     Indication: PRODUCT USED FOR UNKNOWN INDICATION
     Dosage: 5 U, UNKNOWN
     Route: 065
  2. HUMALOG [Suspect]
     Active Substance: INSULIN LISPRO
     Indication: LATENT AUTOIMMUNE DIABETES IN ADULTS
     Dosage: UNK UNK, UNKNOWN
     Route: 065
     Dates: start: 2000
  3. HUMALOG [Suspect]
     Active Substance: INSULIN LISPRO
     Indication: LATENT AUTOIMMUNE DIABETES IN ADULTS
     Dosage: UNK UNK, UNKNOWN
     Route: 065
     Dates: start: 2000

REACTIONS (8)
  - Loss of consciousness [Unknown]
  - Impaired healing [Unknown]
  - Dehydration [Unknown]
  - Maternal exposure during breast feeding [Unknown]
  - Abnormal labour [Unknown]
  - Diarrhoea [Unknown]
  - Abdominal discomfort [Unknown]
  - Maternal exposure during pregnancy [Unknown]

NARRATIVE: CASE EVENT DATE: 20011226
